FAERS Safety Report 5944444-5 (Version None)
Quarter: 2008Q4

REPORT INFORMATION
  Report Type: 
  Country: None (occurrence: None)
  Receive Date: 20081107
  Receipt Date: 20081029
  Transmission Date: 20090506
  Serious: Yes (Other)
  Sender: FDA-Public Use
  Company Number: US-JNJFOC-20081100413

PATIENT
  Sex: Female

DRUGS (3)
  1. RISPERDAL [Suspect]
     Dosage: 12 MG IN THE MORNING AND AN UNKNOWN DOSE IN THE EVENING
     Route: 048
  2. RISPERDAL [Suspect]
     Indication: DRUG USE FOR UNKNOWN INDICATION
     Dosage: IN THE EVENING
     Route: 048
  3. INVEGA [Suspect]
     Indication: DRUG USE FOR UNKNOWN INDICATION
     Dosage: IN THE MORNING

REACTIONS (1)
  - NEUROLEPTIC MALIGNANT SYNDROME [None]
